FAERS Safety Report 15474932 (Version 2)
Quarter: 2018Q4

REPORT INFORMATION
  Report Type: Spontaneous
  Country: US (occurrence: US)
  Receive Date: 20181008
  Receipt Date: 20181017
  Transmission Date: 20190205
  Serious: Yes (Hospitalization, Other)
  Sender: FDA-Public Use
  Company Number: US-PFM-2018-12118

PATIENT

DRUGS (2)
  1. HEMANGEOL [Suspect]
     Active Substance: PROPRANOLOL HYDROCHLORIDE
     Dosage: 2.3 ML, BID (2/DAY)
     Route: 048
     Dates: start: 20181002
  2. HEMANGEOL [Suspect]
     Active Substance: PROPRANOLOL HYDROCHLORIDE
     Indication: INFANTILE HAEMANGIOMA
     Dosage: UNK UNK, BID (2/DAY)
     Route: 048
     Dates: start: 20180816

REACTIONS (3)
  - Meningitis viral [Recovering/Resolving]
  - Mastoiditis [Recovering/Resolving]
  - Ear infection [Recovering/Resolving]
